FAERS Safety Report 19092158 (Version 8)
Quarter: 2025Q2

REPORT INFORMATION
  Report Type: Spontaneous
  Country: US (occurrence: US)
  Receive Date: 20210405
  Receipt Date: 20250604
  Transmission Date: 20250717
  Serious: No
  Sender: PFIZER
  Company Number: US-PFIZER INC-2018463596

PATIENT
  Age: 85 Year
  Sex: Female

DRUGS (14)
  1. XELJANZ XR [Suspect]
     Active Substance: TOFACITINIB CITRATE
     Dosage: 11 MG, 1X/DAY
     Route: 048
  2. ASPIRIN [Concomitant]
     Active Substance: ASPIRIN
  3. ATORVASTATIN [Concomitant]
     Active Substance: ATORVASTATIN
  4. BENAZEPRIL [Concomitant]
     Active Substance: BENAZEPRIL HYDROCHLORIDE
  5. CARVEDILOL [Concomitant]
     Active Substance: CARVEDILOL
  6. CITALOPRAM [Concomitant]
     Active Substance: CITALOPRAM
  7. CARTIN [CHONDROITIN SULFATE SODIUM;GLUCOSAMINE] [Concomitant]
  8. FOLIC ACID [Concomitant]
     Active Substance: FOLIC ACID
  9. FUROSEMIDE [Concomitant]
     Active Substance: FUROSEMIDE
  10. HYDROCHLOROTHIAZIDE [Concomitant]
     Active Substance: HYDROCHLOROTHIAZIDE
  11. PEPCID [Concomitant]
     Active Substance: FAMOTIDINE
  12. VITAMIN B12 [Concomitant]
     Active Substance: CYANOCOBALAMIN
  13. VITAMIN D3 [Concomitant]
     Active Substance: CHOLECALCIFEROL
  14. ZETIA [Concomitant]
     Active Substance: EZETIMIBE

REACTIONS (3)
  - Herpes zoster [Unknown]
  - Pain [Unknown]
  - Hand deformity [Unknown]
